FAERS Safety Report 24539205 (Version 1)
Quarter: 2024Q4

REPORT INFORMATION
  Report Type: Spontaneous
  Country: ES (occurrence: ES)
  Receive Date: 20241023
  Receipt Date: 20241023
  Transmission Date: 20250114
  Serious: Yes (Life-Threatening, Hospitalization)
  Sender: SANDOZ
  Company Number: ES-002147023-PHHY2019ES140685

PATIENT
  Age: 55 Year
  Sex: Male

DRUGS (7)
  1. DISULFIRAM [Concomitant]
     Active Substance: DISULFIRAM
     Indication: Alcoholism
     Dosage: 250 MG, QD
     Route: 048
     Dates: start: 2013, end: 20190509
  2. CLONAZEPAM [Concomitant]
     Active Substance: CLONAZEPAM
     Indication: Bipolar disorder
     Dosage: 1.5 MG, QD
     Route: 048
     Dates: start: 2013
  3. Plenur [Concomitant]
     Indication: Bipolar disorder
     Dosage: 400 MG, Q12H
     Route: 048
     Dates: start: 2013, end: 20190509
  4. QUETIAPINE [Concomitant]
     Active Substance: QUETIAPINE
     Indication: Bipolar disorder
     Dosage: 150 MG, QD
     Route: 048
     Dates: start: 2013
  5. ANAFRANIL [Interacting]
     Active Substance: CLOMIPRAMINE HYDROCHLORIDE
     Indication: Bipolar disorder
     Dosage: UNK
     Route: 048
  6. FLUVOXAMINE MALEATE [Interacting]
     Active Substance: FLUVOXAMINE MALEATE
     Indication: Bipolar disorder
     Dosage: 150 MG, QD
     Route: 048
     Dates: start: 2013, end: 20190509
  7. LEVOMEPROMAZINE HYDROCHLORIDE [Interacting]
     Active Substance: LEVOMEPROMAZINE HYDROCHLORIDE
     Indication: Bipolar disorder
     Dosage: 50 MG, QD
     Route: 048
     Dates: start: 20190429, end: 20190509

REACTIONS (5)
  - Antidepressant drug level increased [Recovering/Resolving]
  - Disorientation [Recovered/Resolved]
  - Slow speech [Recovered/Resolved]
  - Electrocardiogram QT prolonged [Recovered/Resolved]
  - Tremor [Recovering/Resolving]

NARRATIVE: CASE EVENT DATE: 20190507
